FAERS Safety Report 7808247-9 (Version None)
Quarter: 2011Q4

REPORT INFORMATION
  Report Type: 
  Country: None (occurrence: None)
  Receive Date: 20111012
  Receipt Date: 20111003
  Transmission Date: 20120403
  Serious: Yes (Hospitalization)
  Sender: FDA-Public Use
  Company Number: US-BIOGENIDEC-2011BI025758

PATIENT
  Age: 36 Year
  Sex: Female

DRUGS (6)
  1. NIFEDIPINE [Concomitant]
     Route: 048
  2. ZANTAC [Concomitant]
  3. FOLIC ACID [Concomitant]
  4. PRENATAL VITAMINS [Concomitant]
  5. ZOFRAN [Concomitant]
  6. TYSABRI [Suspect]
     Indication: MATERNAL EXPOSURE DURING PREGNANCY
     Dates: start: 20101013

REACTIONS (4)
  - PREMATURE LABOUR [None]
  - STREPTOCOCCUS TEST POSITIVE [None]
  - PERINEAL LACERATION [None]
  - POSTPARTUM HAEMORRHAGE [None]
